FAERS Safety Report 11276057 (Version 1)
Quarter: 2015Q3

REPORT INFORMATION
  Report Type: Spontaneous
  Country: GB (occurrence: GB)
  Receive Date: 20150716
  Receipt Date: 20150716
  Transmission Date: 20151125
  Serious: Yes (Other)
  Sender: FDA-Public Use
  Company Number: GB-VIIV HEALTHCARE LIMITED-GB2015101774

PATIENT
  Age: 77 Year
  Sex: Male

DRUGS (9)
  1. SILDENAFIL. [Concomitant]
     Active Substance: SILDENAFIL
  2. LEVOTHYROXINE. [Concomitant]
     Active Substance: LEVOTHYROXINE
  3. QUININE [Concomitant]
     Active Substance: QUININE
  4. DOLUTEGRAVIR [Suspect]
     Active Substance: DOLUTEGRAVIR
     Indication: HIV INFECTION
     Route: 048
     Dates: start: 20150608, end: 20150705
  5. BUMETANIDE. [Concomitant]
     Active Substance: BUMETANIDE
  6. OMEPRAZOLE. [Concomitant]
     Active Substance: OMEPRAZOLE
  7. RAMIPRIL. [Concomitant]
     Active Substance: RAMIPRIL
  8. VALPROATE SODIUM. [Concomitant]
     Active Substance: VALPROATE SODIUM
  9. ATORVASTATIN [Concomitant]
     Active Substance: ATORVASTATIN

REACTIONS (2)
  - Insomnia [Recovering/Resolving]
  - Mania [Recovering/Resolving]

NARRATIVE: CASE EVENT DATE: 20150630
